FAERS Safety Report 8029901-2 (Version None)
Quarter: 2012Q1

REPORT INFORMATION
  Report Type: 
  Country: None (occurrence: None)
  Receive Date: 20120109
  Receipt Date: 20111229
  Transmission Date: 20120608
  Serious: Yes (Other)
  Sender: FDA-Public Use
  Company Number: US-ELI_LILLY_AND_COMPANY-US201010001030

PATIENT
  Sex: Female
  Weight: 41 kg

DRUGS (2)
  1. FORTEO [Suspect]
     Indication: OSTEOPOROSIS
     Dosage: 20 UG, DAILY (1/D)
     Route: 065
     Dates: start: 20101001
  2. FORTEO [Suspect]
     Dosage: 20 UG, DAILY (1/D)

REACTIONS (14)
  - DRUG DOSE OMISSION [None]
  - PAIN [None]
  - INSOMNIA [None]
  - MYALGIA [None]
  - ASTHENIA [None]
  - PAIN IN EXTREMITY [None]
  - VARICOSE VEIN [None]
  - MUSCULOSKELETAL PAIN [None]
  - WEIGHT DECREASED [None]
  - LIMB DISCOMFORT [None]
  - TREMOR [None]
  - VEIN DISORDER [None]
  - NAUSEA [None]
  - MUSCLE SPASMS [None]
